FAERS Safety Report 10028116 (Version 2)
Quarter: 2014Q1

REPORT INFORMATION
  Report Type: Spontaneous
  Country: FR (occurrence: FR)
  Receive Date: 20140321
  Receipt Date: 20140321
  Transmission Date: 20141002
  Serious: Yes (Other)
  Sender: FDA-Public Use
  Company Number: FR-ASTRAZENECA-2014SE10898

PATIENT
  Age: 22505 Day
  Sex: Male

DRUGS (4)
  1. BRILIQUE [Suspect]
     Indication: STENT PLACEMENT
     Route: 048
     Dates: start: 20130529, end: 20131110
  2. COLCHIMAX [Concomitant]
     Indication: GOUT
  3. ASPEGIC [Concomitant]
     Indication: STENT PLACEMENT
     Dates: start: 20130531
  4. EUPANTOL [Concomitant]
     Dosage: PUNCTUALLY

REACTIONS (6)
  - Hepatic function abnormal [Recovering/Resolving]
  - Haematoma [Unknown]
  - Serum ferritin increased [Recovering/Resolving]
  - Feeling abnormal [Unknown]
  - Dysgeusia [Unknown]
  - Headache [Unknown]
